FAERS Safety Report 13392566 (Version 1)
Quarter: 2017Q1

REPORT INFORMATION
  Report Type: Spontaneous
  Country: CA (occurrence: CA)
  Receive Date: 20170331
  Receipt Date: 20170331
  Transmission Date: 20170429
  Serious: Yes (Disabling)
  Sender: FDA-Public Use
  Company Number: CA-TEVA-754470ACC

PATIENT
  Sex: Female

DRUGS (1)
  1. NOVO-CLINDAMYCIN [Suspect]
     Active Substance: CLINDAMYCIN HYDROCHLORIDE
     Indication: TOOTH ABSCESS
     Dosage: 1200 MILLIGRAM DAILY;
     Route: 048

REACTIONS (2)
  - Migraine [Recovered/Resolved]
  - Vertigo [Recovered/Resolved]
